FAERS Safety Report 20621723 (Version 1)
Quarter: 2022Q1

REPORT INFORMATION
  Report Type: Spontaneous
  Country: US (occurrence: None)
  Receive Date: 20220322
  Receipt Date: 20220322
  Transmission Date: 20220423
  Serious: Yes (Death)
  Sender: FDA-Public Use
  Company Number: None

PATIENT
  Age: 82 Year
  Sex: Male

DRUGS (7)
  1. AMBRISENTAN [Suspect]
     Active Substance: AMBRISENTAN
     Indication: Pulmonary arterial hypertension
     Dosage: TAKE 1 TABLET (10 MG)  BY MOUTH DAILY (DO NOT CUT, CRUSH, OR CHEW TABLETS)
     Route: 048
     Dates: start: 20200130, end: 2022
  2. AMOXICILLlN [Concomitant]
  3. IMIQUIMOD CRE 5% [Concomitant]
  4. LEVITRA TAB 20MG [Concomitant]
  5. SILDENAFIL [Concomitant]
     Active Substance: SILDENAFIL
  6. TADALAFIL [Concomitant]
     Active Substance: TADALAFIL
  7. VITAMIN D CAP 400UNIT [Concomitant]

REACTIONS (1)
  - Fall [None]

NARRATIVE: CASE EVENT DATE: 20220319
